FAERS Safety Report 9513586 (Version 2)
Quarter: 2013Q4

REPORT INFORMATION
  Report Type: Spontaneous
  Country: US (occurrence: US)
  Receive Date: 20130910
  Receipt Date: 20131107
  Transmission Date: 20140711
  Serious: Yes (Death, Hospitalization)
  Sender: FDA-Public Use
  Company Number: US-GLAXOSMITHKLINE-A1040439A

PATIENT
  Age: 69 Year
  Sex: Female

DRUGS (4)
  1. ARIXTRA [Suspect]
     Indication: PULMONARY EMBOLISM
     Dosage: 7.5MG PER DAY
     Route: 058
     Dates: start: 2012
  2. PULMICORT [Concomitant]
  3. SOMINEX [Concomitant]
  4. UNSPECIFIED MEDICATIONS [Concomitant]

REACTIONS (1)
  - Lung neoplasm malignant [Fatal]
